FAERS Safety Report 8273550-8 (Version None)
Quarter: 2012Q2

REPORT INFORMATION
  Report Type: 
  Country: None (occurrence: None)
  Receive Date: 20120411
  Receipt Date: 20120104
  Transmission Date: 20120825
  Serious: No
  Sender: FDA-Public Use
  Company Number: US-TEVA-316530USA

PATIENT
  Sex: Female
  Weight: 67.192 kg

DRUGS (12)
  1. PRAMIPEXOLE DIHYDROCHLORIDE [Concomitant]
     Dosage: 2 AT HS
  2. HYDROCORTISONE [Concomitant]
     Dosage: 10 MG IN AM, 5 MG PM
  3. FOLIC ACID [Concomitant]
  4. HYDROCHLOROTHIAZIDE [Concomitant]
  5. NUVIGIL [Suspect]
     Dosage: 75 MILLIGRAM;
     Route: 048
     Dates: start: 20110103
  6. RANITIDINE [Concomitant]
  7. GABAPENTIN [Concomitant]
  8. LEVOTHYROXINE SODIUM [Concomitant]
     Dates: start: 19720101
  9. ALPRAZOLAM [Concomitant]
     Dosage: 1 IN AM, 3 AT HS
  10. TEMAZEPAM [Concomitant]
     Dosage: 2-3 AT HS
  11. NUVIGIL [Suspect]
     Indication: NARCOLEPSY
     Dosage: 150 MILLIGRAM;
     Route: 048
     Dates: start: 20111220
  12. BUPROPION HCL [Concomitant]
     Dates: start: 19960101

REACTIONS (8)
  - FRUSTRATION [None]
  - SCREAMING [None]
  - ABNORMAL BEHAVIOUR [None]
  - INCORRECT DOSE ADMINISTERED [None]
  - IMPATIENCE [None]
  - CRYING [None]
  - ANGER [None]
  - NERVOUSNESS [None]
